FAERS Safety Report 16469332 (Version 1)
Quarter: 2019Q3

REPORT INFORMATION
  Report Type: Spontaneous
  Country: US (occurrence: US)
  Receive Date: 20190621
  Receipt Date: 20190621
  Transmission Date: 20191004
  Serious: Yes (Hospitalization)
  Sender: FDA-Public Use
  Company Number: None

PATIENT
  Age: 71 Year
  Sex: Female
  Weight: 80.42 kg

DRUGS (15)
  1. CAPECITABINE. [Suspect]
     Active Substance: CAPECITABINE
     Indication: CHOLANGIOCARCINOMA
     Route: 048
     Dates: start: 20190228, end: 20190620
  2. JANUVIA [Concomitant]
     Active Substance: SITAGLIPTIN PHOSPHATE
  3. METOPROLOL. [Concomitant]
     Active Substance: METOPROLOL
  4. ONDANSETRON [Concomitant]
     Active Substance: ONDANSETRON
  5. NORCO [Concomitant]
     Active Substance: ACETAMINOPHEN\HYDROCODONE BITARTRATE
  6. PROAIR HFA [Concomitant]
     Active Substance: ALBUTEROL SULFATE
  7. LOSARTAN. [Concomitant]
     Active Substance: LOSARTAN
  8. LYRICA [Concomitant]
     Active Substance: PREGABALIN
  9. MIRTAZAPINE. [Concomitant]
     Active Substance: MIRTAZAPINE
  10. LIDOCAINE-PRILOCAINE [Concomitant]
     Active Substance: LIDOCAINE\PRILOCAINE
  11. GABAPENTIN. [Concomitant]
     Active Substance: GABAPENTIN
  12. ELIQUIS [Concomitant]
     Active Substance: APIXABAN
  13. SIMVASTATIN. [Concomitant]
     Active Substance: SIMVASTATIN
  14. CALCITONIN [Concomitant]
     Active Substance: CALCITONIN
  15. METFORMIN [Concomitant]
     Active Substance: METFORMIN HYDROCHLORIDE

REACTIONS (1)
  - Disease progression [None]

NARRATIVE: CASE EVENT DATE: 20190620
